FAERS Safety Report 11368507 (Version 3)
Quarter: 2015Q4

REPORT INFORMATION
  Report Type: Spontaneous
  Country: JP (occurrence: JP)
  Receive Date: 20150812
  Receipt Date: 20151007
  Transmission Date: 20160304
  Serious: Yes (Life-Threatening, Other)
  Sender: FDA-Public Use
  Company Number: JP-ROCHE-1619584

PATIENT
  Age: 80 Year
  Sex: Female
  Weight: 47 kg

DRUGS (2)
  1. PREDNISOLONE. [Concomitant]
     Active Substance: PREDNISOLONE
     Indication: RHEUMATOID ARTHRITIS
     Route: 065
  2. ACTEMRA [Suspect]
     Active Substance: TOCILIZUMAB
     Indication: RHEUMATOID ARTHRITIS
     Dosage: DOSAGE IS UNCERTAIN.
     Route: 041

REACTIONS (8)
  - Hepatosplenomegaly [Unknown]
  - Histiocytosis haematophagic [Not Recovered/Not Resolved]
  - Nephrolithiasis [Unknown]
  - Interstitial lung disease [Unknown]
  - Platelet count decreased [Not Recovered/Not Resolved]
  - Hepatic function abnormal [Not Recovered/Not Resolved]
  - Renal cyst [Unknown]
  - Lymphoma [Unknown]

NARRATIVE: CASE EVENT DATE: 20150722
